FAERS Safety Report 5307678-9 (Version None)
Quarter: 2007Q2

REPORT INFORMATION
  Report Type: 
  Country: None (occurrence: None)
  Receive Date: 20070419
  Receipt Date: 20070405
  Transmission Date: 20071010
  Serious: Yes (Hospitalization)
  Sender: FDA-Public Use
  Company Number: 6032019

PATIENT
  Age: 76 Year
  Sex: Male

DRUGS (5)
  1. CLAMOXYL ^ALPHAPHARM^ (1, 7 GRAM, TABLET) (AMOXICILLIN, CLAVULANIC AC [Suspect]
     Indication: RESPIRATORY DISORDER
     Dosage: 1,700 GM
     Route: 048
     Dates: start: 20060613, end: 20060622
  2. WARFARIN SODIUM [Suspect]
     Indication: DRUG USE FOR UNKNOWN INDICATION
     Dosage: 3,000 MG (3 MG, 1 IN 1 D)
  3. LIPITOR [Suspect]
     Indication: DRUG USE FOR UNKNOWN INDICATION
     Dosage: 20,000 MG (20 MG, 1 IN 1 D)
     Route: 048
     Dates: start: 20050601
  4. GLUCOSAMINE  NOS (GLUCOSAMINE) [Concomitant]
  5. KAVEA (IRBESARTAN) [Concomitant]

REACTIONS (3)
  - HEPATIC FAILURE [None]
  - INTERNATIONAL NORMALISED RATIO INCREASED [None]
  - PRURITUS [None]
